FAERS Safety Report 6993227-6 (Version None)
Quarter: 2010Q3

REPORT INFORMATION
  Report Type: 
  Country: None (occurrence: None)
  Receive Date: 20100917
  Receipt Date: 20090918
  Transmission Date: 20110219
  Serious: No
  Sender: FDA-Public Use
  Company Number: US-ASTRAZENECA-2009SE14165

PATIENT
  Age: 53 Year
  Sex: Male
  Weight: 104.3 kg

DRUGS (7)
  1. SEROQUEL [Suspect]
     Route: 048
     Dates: start: 20040101
  2. PRISTIQ [Concomitant]
     Indication: MAJOR DEPRESSION
  3. WELLBUTRIN [Concomitant]
     Indication: MAJOR DEPRESSION
  4. LAMICTAL [Concomitant]
     Indication: MAJOR DEPRESSION
  5. HYZAAR [Concomitant]
     Indication: HYPERTENSION
  6. VERAPAMIL [Concomitant]
     Indication: HYPERTENSION
  7. LIPITOR [Concomitant]
     Indication: BLOOD CHOLESTEROL

REACTIONS (2)
  - MUSCULOSKELETAL PAIN [None]
  - NECK PAIN [None]
